FAERS Safety Report 10062300 (Version 1)
Quarter: 2014Q2

REPORT INFORMATION
  Report Type: Report from Study
  Country: NL (occurrence: NL)
  Receive Date: 20140407
  Receipt Date: 20140407
  Transmission Date: 20141212
  Serious: Yes (Death, Hospitalization)
  Sender: FDA-Public Use
  Company Number: NL-009507513-1403NLD013003

PATIENT
  Age: 62 Year
  Sex: Male
  Weight: 66 kg

DRUGS (7)
  1. DEXAMETHASONE [Suspect]
     Indication: PLASMA CELL MYELOMA
     Dosage: ON 1,2,4,8,9,11,12 EVERY 21 DAYS
     Route: 048
     Dates: start: 20130701, end: 20130905
  2. BORTEZOMIB [Suspect]
     Indication: PLASMA CELL MYELOMA
     Dosage: 2.3 MG/M2, UNK
     Route: 058
     Dates: start: 20130701, end: 20130905
  3. OXYCONTIN [Concomitant]
     Indication: PAIN
     Dosage: UNK
  4. METOCLOPRAMIDE [Concomitant]
     Indication: NAUSEA
     Dosage: UNK
  5. OXYNORM [Concomitant]
     Indication: PAIN
     Dosage: UNK
  6. AMITRIPTYLINE HYDROCHLORIDE [Concomitant]
     Indication: PAIN
     Dosage: UNK
  7. ACETAMINOPHEN [Concomitant]
     Indication: PAIN
     Dosage: UNK

REACTIONS (5)
  - Death [Fatal]
  - Musculoskeletal pain [Unknown]
  - Malignant neoplasm progression [Unknown]
  - Hypercalcaemia [Unknown]
  - Renal failure [Unknown]
